FAERS Safety Report 5507978-3 (Version None)
Quarter: 2007Q4

REPORT INFORMATION
  Report Type: 
  Country: None (occurrence: None)
  Receive Date: 20071106
  Receipt Date: 20071105
  Transmission Date: 20080405
  Serious: Yes (Hospitalization)
  Sender: FDA-Public Use
  Company Number: US-ALLERGAN-200600037

PATIENT
  Age: 56 Year
  Sex: Male
  Weight: 84.091 kg

DRUGS (1)
  1. BOTOX [Suspect]
     Indication: MUSCLE SPASMS
     Dosage: 200UNITS, SINGLE
     Route: 030

REACTIONS (6)
  - DROOLING [None]
  - DYSARTHRIA [None]
  - GAIT DISTURBANCE [None]
  - HYPERREFLEXIA [None]
  - MEMORY IMPAIRMENT [None]
  - PRESYNCOPE [None]
